FAERS Safety Report 7889128-1 (Version None)
Quarter: 2011Q4

REPORT INFORMATION
  Report Type: 
  Country: None (occurrence: None)
  Receive Date: 20111103
  Receipt Date: 20111024
  Transmission Date: 20120403
  Serious: Yes (Other)
  Sender: FDA-Public Use
  Company Number: US-BAYER-2011-050171

PATIENT
  Age: 45 Year
  Sex: Female
  Weight: 66.667 kg

DRUGS (5)
  1. PRILOSEC [Concomitant]
     Dosage: 20 MG, QD
     Route: 048
  2. MULTI-VITAMIN [Concomitant]
     Dosage: UNK UNK, QD
     Route: 048
  3. SERTRALINE HYDROCHLORIDE [Concomitant]
     Dosage: 50 MG, UNK
     Route: 048
     Dates: start: 20090804
  4. YAZ [Suspect]
     Indication: CONTRACEPTION
     Dosage: UNK
     Dates: start: 20081201, end: 20091101
  5. CLONAZEPAM [Concomitant]
     Dosage: 0.5 MG, QD
     Route: 048

REACTIONS (6)
  - GALLBLADDER INJURY [None]
  - INJURY [None]
  - ANXIETY [None]
  - PAIN [None]
  - EMOTIONAL DISTRESS [None]
  - CHOLECYSTITIS CHRONIC [None]
